FAERS Safety Report 7559177-1 (Version None)
Quarter: 2011Q2

REPORT INFORMATION
  Report Type: 
  Country: None (occurrence: None)
  Receive Date: 20110621
  Receipt Date: 20110610
  Transmission Date: 20111010
  Serious: Yes (Other)
  Sender: FDA-Public Use
  Company Number: DK-PFIZER INC-DK-WYE-G05771310

PATIENT
  Age: 25 Year
  Sex: Female
  Weight: 155 kg

DRUGS (1)
  1. EFFEXOR [Suspect]
     Indication: DEPRESSION
     Dosage: 150 MG, 1X/DAY
     Route: 048
     Dates: start: 20040901

REACTIONS (2)
  - TOOTH INJURY [None]
  - DRY MOUTH [None]
